FAERS Safety Report 18575771 (Version 1)
Quarter: 2020Q4

REPORT INFORMATION
  Report Type: Spontaneous
  Country: CY (occurrence: CY)
  Receive Date: 20201203
  Receipt Date: 20201203
  Transmission Date: 20210114
  Serious: Yes (Hospitalization)
  Sender: FDA-Public Use
  Company Number: CY-STRIDES ARCOLAB LIMITED-2020SP014935

PATIENT
  Age: 48 Year
  Sex: Female

DRUGS (2)
  1. TRIAMCINOLONE ACETONIDE. [Suspect]
     Active Substance: TRIAMCINOLONE ACETONIDE
     Indication: ANALGESIC THERAPY
     Dosage: 40 MILLIGRAM, QOD
     Route: 030
  2. ATORVASTATIN [Interacting]
     Active Substance: ATORVASTATIN
     Indication: PRODUCT USED FOR UNKNOWN INDICATION
     Dosage: 10 MILLIGRAM PER DAY
     Route: 065

REACTIONS (8)
  - Hirsutism [Recovered/Resolved]
  - Cushingoid [Recovered/Resolved]
  - Cushing^s syndrome [Recovered/Resolved]
  - Plethoric face [Recovered/Resolved]
  - Adrenal insufficiency [Not Recovered/Not Resolved]
  - Fat tissue increased [Recovered/Resolved]
  - Nausea [Unknown]
  - Drug interaction [Unknown]
